FAERS Safety Report 8166914-4 (Version None)
Quarter: 2012Q1

REPORT INFORMATION
  Report Type: 
  Country: None (occurrence: None)
  Receive Date: 20120227
  Receipt Date: 20120221
  Transmission Date: 20120608
  Serious: Yes (Other)
  Sender: FDA-Public Use
  Company Number: US-TEVA-314464USA

PATIENT
  Sex: Male

DRUGS (2)
  1. PREDNISONE [Concomitant]
     Dates: end: 20110601
  2. COPAXONE [Suspect]
     Indication: MULTIPLE SCLEROSIS
     Dosage: 20 MILLIGRAM;
     Route: 058
     Dates: start: 20101215, end: 20111220

REACTIONS (2)
  - HAEMOLYTIC ANAEMIA [None]
  - LYMPHOCYTIC LYMPHOMA [None]
